FAERS Safety Report 4599296-5 (Version None)
Quarter: 2005Q1

REPORT INFORMATION
  Report Type: 
  Country: None (occurrence: None)
  Receive Date: 20050303
  Receipt Date: 20050303
  Transmission Date: 20050727
  Serious: Yes (Life-Threatening, Hospitalization)
  Sender: FDA-Public Use
  Company Number: None

PATIENT
  Age: 68 Year
  Sex: Female

DRUGS (15)
  1. KETEK [Suspect]
     Indication: BRONCHITIS ACUTE
     Dosage: 800MG  DAILY ORAL
     Route: 048
     Dates: start: 20030817, end: 20040817
  2. FUROSEMIDE [Concomitant]
  3. POTASSIUM CHLORIDE [Concomitant]
  4. LEVOTHYROXINE [Concomitant]
  5. WARFARIN [Concomitant]
  6. ZOCOR [Concomitant]
  7. COZAAR [Concomitant]
  8. HYDROCHLOROTHIAZIDE [Concomitant]
  9. ADVAIR INHALER [Concomitant]
  10. COMBIVENT [Concomitant]
  11. UNIPHYL [Concomitant]
  12. EFFEXOR [Concomitant]
  13. CALCIUM GLUCONATE [Concomitant]
  14. MULTI-VITAMIN [Concomitant]
  15. DOCUSATE [Concomitant]

REACTIONS (7)
  - ARRHYTHMIA [None]
  - BUNDLE BRANCH BLOCK LEFT [None]
  - CARDIAC ARREST [None]
  - CARDIOMYOPATHY [None]
  - EJECTION FRACTION DECREASED [None]
  - ELECTROCARDIOGRAM QT CORRECTED INTERVAL PROLONGED [None]
  - VENTRICULAR TACHYCARDIA [None]
